FAERS Safety Report 15845207 (Version 1)
Quarter: 2019Q1

REPORT INFORMATION
  Report Type: Report from Study
  Country: IT (occurrence: IT)
  Receive Date: 20190119
  Receipt Date: 20190119
  Transmission Date: 20190417
  Serious: Yes (Other)
  Sender: FDA-Public Use
  Company Number: IT-ACCORD-102787

PATIENT
  Age: 62 Year
  Sex: Female
  Weight: 43 kg

DRUGS (2)
  1. GEMCITABINE [Suspect]
     Active Substance: GEMCITABINE\GEMCITABINE HYDROCHLORIDE
     Indication: BREAST CANCER
     Dosage: STRENGTH : 200 MG
     Route: 042
     Dates: start: 20180515
  2. FULVESTRANT. [Concomitant]
     Active Substance: FULVESTRANT
     Route: 030

REACTIONS (1)
  - Leukopenia [Recovering/Resolving]

NARRATIVE: CASE EVENT DATE: 20180605
